FAERS Safety Report 7521951-5 (Version None)
Quarter: 2011Q2

REPORT INFORMATION
  Report Type: 
  Country: None (occurrence: None)
  Receive Date: 20110603
  Receipt Date: 20110527
  Transmission Date: 20111010
  Serious: Yes (Disabling, Other)
  Sender: FDA-Public Use
  Company Number: US-BRISTOL-MYERS SQUIBB COMPANY-15792393

PATIENT
  Age: 87 Year
  Sex: Female
  Weight: 66 kg

DRUGS (3)
  1. KENALOG [Suspect]
     Indication: ARTHRALGIA
     Route: 014
     Dates: start: 20110315, end: 20110315
  2. DECADRON [Suspect]
     Indication: ARTHRALGIA
     Dosage: INJECTION
     Route: 014
     Dates: start: 20110315, end: 20110315
  3. LIDOCAINE [Suspect]
     Indication: ARTHRALGIA
     Dosage: INJ; USP (0625-25)10MG/ML; ON 08APR2011 2% INJECTION
     Route: 014
     Dates: start: 20110315

REACTIONS (5)
  - ABASIA [None]
  - BURSITIS INFECTIVE [None]
  - INSOMNIA [None]
  - SEPTIC ARTHRITIS STREPTOCOCCAL [None]
  - FALL [None]
